FAERS Safety Report 17459781 (Version 2)
Quarter: 2020Q1

REPORT INFORMATION
  Report Type: Report from Study
  Country: NL (occurrence: NL)
  Receive Date: 20200226
  Receipt Date: 20200306
  Transmission Date: 20200409
  Serious: Yes (Hospitalization)
  Sender: FDA-Public Use
  Company Number: NVSC2020NL047708

PATIENT
  Age: 84 Year
  Sex: Female
  Weight: 45 kg

DRUGS (3)
  1. LEE011 [Suspect]
     Active Substance: RIBOCICLIB
     Indication: BLADDER CANCER
     Dosage: 600 MG, QD
     Route: 048
     Dates: start: 20191104, end: 20200207
  2. PERINDOPRIL [Concomitant]
     Active Substance: PERINDOPRIL
     Indication: PRODUCT USED FOR UNKNOWN INDICATION
     Dosage: 4 MG
     Route: 065
  3. METOCLOPRAMIDE. [Concomitant]
     Active Substance: METOCLOPRAMIDE
     Indication: PRODUCT USED FOR UNKNOWN INDICATION
     Route: 065

REACTIONS (1)
  - Jaundice [Unknown]

NARRATIVE: CASE EVENT DATE: 20200218
